FAERS Safety Report 17951398 (Version 1)
Quarter: 2020Q2

REPORT INFORMATION
  Report Type: Spontaneous
  Country: ES (occurrence: ES)
  Receive Date: 20200626
  Receipt Date: 20200626
  Transmission Date: 20200714
  Serious: Yes (Hospitalization)
  Sender: FDA-Public Use
  Company Number: ES-TEVA-2020-ES-1791217

PATIENT
  Age: 64 Year
  Sex: Male

DRUGS (5)
  1. SIMVASTATINA 10 MG 28 COMPRIMIDOS [Concomitant]
     Active Substance: SIMVASTATIN
     Indication: HYPERLIPIDAEMIA
     Dosage: 10 MG
     Route: 048
     Dates: start: 20191002
  2. HIDROXICLOROQUINA 200 MG COMPRIMIDO [Suspect]
     Active Substance: HYDROXYCHLOROQUINE
     Indication: COVID-19 PNEUMONIA
     Dosage: 200 MG
     Route: 048
     Dates: start: 20200321, end: 20200331
  3. AZITROMICINA (7019A) [Suspect]
     Active Substance: AZITHROMYCIN
     Indication: COVID-19 PNEUMONIA
     Route: 048
     Dates: start: 20200321, end: 20200423
  4. LOPINAVIR/RITONAVIR 200 MG/50 MG COMPRIMIDO [Suspect]
     Active Substance: LOPINAVIR\RITONAVIR
     Indication: COVID-19 PNEUMONIA
     Dosage: 1 DOSAGE FORMS
     Route: 048
     Dates: start: 20200321, end: 20200330
  5. ALOPURINOL 100 MG 100 COMPRIMIDOS [Concomitant]
     Indication: PRODUCT USED FOR UNKNOWN INDICATION
     Dosage: 100 MG
     Route: 048
     Dates: start: 20191003

REACTIONS (2)
  - Hepatic enzyme increased [Recovering/Resolving]
  - Hyperbilirubinaemia [Recovered/Resolved]

NARRATIVE: CASE EVENT DATE: 20200323
